FAERS Safety Report 8956408 (Version 3)
Quarter: 2013Q1

REPORT INFORMATION
  Report Type: Spontaneous
  Country: NZ (occurrence: NZ)
  Receive Date: 20121210
  Receipt Date: 20130206
  Transmission Date: 20140127
  Serious: Yes (Life-Threatening, Hospitalization, Disabling, Other)
  Sender: FDA-Public Use
  Company Number: NZ-PFIZER INC-2012306706

PATIENT
  Age: 2 Year
  Sex: Male
  Weight: 13 kg

DRUGS (3)
  1. XYNTHA [Suspect]
     Indication: FACTOR VIII DEFICIENCY
     Dosage: 250 IU, WEEKLY
     Route: 042
     Dates: start: 20111223, end: 20121202
  2. AMOXYCILLIN [Concomitant]
     Indication: EAR INFECTION
     Dosage: 175 MG, 3X/DAY (5 DAYS)
     Route: 048
     Dates: start: 20121129, end: 20121202
  3. PARACETAMOL [Concomitant]
     Indication: EAR PAIN
     Dosage: 120 MG, AS NEEDED
     Route: 048
     Dates: start: 20121129, end: 20121202

REACTIONS (5)
  - Convulsion [Recovered/Resolved with Sequelae]
  - Cerebral haemorrhage [Recovered/Resolved with Sequelae]
  - Subdural haematoma [Recovered/Resolved with Sequelae]
  - Factor VIII inhibition [Unknown]
  - Ear infection [Unknown]
